FAERS Safety Report 7296769-1 (Version None)
Quarter: 2011Q1

REPORT INFORMATION
  Report Type: 
  Country: None (occurrence: None)
  Receive Date: 20110216
  Receipt Date: 20110210
  Transmission Date: 20110831
  Serious: Yes (Life-Threatening)
  Sender: FDA-Public Use
  Company Number: B0679678A

PATIENT
  Sex: Female

DRUGS (4)
  1. AUGMENTIN [Suspect]
     Indication: PHARYNGITIS
     Dosage: 1G PER DAY
     Route: 048
     Dates: start: 20100909, end: 20100909
  2. UNKNOWN DRUG [Concomitant]
     Dosage: 1TAB PER DAY
     Route: 048
  3. ACTONEL [Concomitant]
     Indication: OSTEOPOROSIS
     Dosage: 5MG PER DAY
     Route: 048
     Dates: start: 20080101, end: 20100923
  4. ATENOLOL [Concomitant]
     Indication: HYPERTENSION
     Dosage: 50MG PER DAY
     Route: 048
     Dates: start: 20080111, end: 20100923

REACTIONS (2)
  - ANAPHYLACTIC SHOCK [None]
  - BLOOD IMMUNOGLOBULIN E INCREASED [None]
